FAERS Safety Report 5477624-6 (Version None)
Quarter: 2007Q4

REPORT INFORMATION
  Report Type: 
  Country: None (occurrence: None)
  Receive Date: 20071002
  Receipt Date: 20070918
  Transmission Date: 20080405
  Serious: Yes (Other)
  Sender: FDA-Public Use
  Company Number: 2007JP001171

PATIENT
  Age: 44 Year
  Sex: Male

DRUGS (4)
  1. PROGRAF [Suspect]
     Indication: CORD BLOOD TRANSPLANT THERAPY
     Dosage: 0.02 MG/KG, CONTINUOUS, IV DRIP
     Route: 041
     Dates: start: 20060728
  2. METHOTREXATE [Concomitant]
  3. MYCOPHENOLATE MOFETIL [Concomitant]
  4. GRANULOCYTE COLONY STIMULATING FACTOR       (GRANULOCYTE COLONY STIMUL [Concomitant]

REACTIONS (2)
  - CRYPTOGENIC ORGANISING PNEUMONIA [None]
  - ENCEPHALITIS HERPES [None]
